FAERS Safety Report 20332726 (Version 2)
Quarter: 2024Q2

REPORT INFORMATION
  Report Type: Report from Study
  Country: BR (occurrence: BR)
  Receive Date: 20220113
  Receipt Date: 20240409
  Transmission Date: 20240716
  Serious: Yes (Other)
  Sender: FDA-Public Use
  Company Number: BR-JNJFOC-20220110432

PATIENT

DRUGS (6)
  1. INVEGA SUSTENNA [Suspect]
     Active Substance: PALIPERIDONE PALMITATE
     Indication: Schizophrenia
     Dosage: DAY 0
     Route: 030
  2. INVEGA SUSTENNA [Suspect]
     Active Substance: PALIPERIDONE PALMITATE
     Dosage: DAY 8
     Route: 058
  3. INVEGA SUSTENNA [Suspect]
     Active Substance: PALIPERIDONE PALMITATE
     Route: 058
  4. HALDOL [Suspect]
     Active Substance: HALOPERIDOL
     Indication: Product used for unknown indication
     Route: 065
  5. INVEGA [Suspect]
     Active Substance: PALIPERIDONE
     Indication: Schizophrenia
     Route: 048
  6. RISPERDAL [Suspect]
     Active Substance: RISPERIDONE
     Indication: Schizophrenia
     Route: 048

REACTIONS (17)
  - Dystonia [Unknown]
  - Weight decreased [Unknown]
  - Tardive dyskinesia [Unknown]
  - Psychotic disorder [Unknown]
  - Parkinsonism [Unknown]
  - Akathisia [Unknown]
  - Hyperglycaemia [Unknown]
  - Agitation [Unknown]
  - Muscle rigidity [Unknown]
  - Tremor [Unknown]
  - Injection site pain [Unknown]
  - Weight increased [Unknown]
  - Insomnia [Unknown]
  - Somnolence [Unknown]
  - Anxiety [Unknown]
  - Headache [Unknown]
  - Blood prolactin increased [Unknown]
